FAERS Safety Report 22306440 (Version 1)
Quarter: 2023Q2

REPORT INFORMATION
  Report Type: Other
  Country: FR (occurrence: FR)
  Receive Date: 20230511
  Receipt Date: 20230511
  Transmission Date: 20230721
  Serious: No
  Sender: FDA-Public Use
  Company Number: None

PATIENT
  Age: 75 Year
  Sex: Female
  Weight: 65 kg

DRUGS (3)
  1. FLUDEOXYGLUCOSE F-18 [Suspect]
     Active Substance: FLUDEOXYGLUCOSE F-18
     Indication: Positron emission tomogram
     Dosage: 1 DOSAGE FORM
     Route: 042
     Dates: start: 20220307, end: 20220307
  2. ALBENDAZOLE [Concomitant]
     Active Substance: ALBENDAZOLE
     Indication: Hepatic echinococciasis
     Dosage: UNK
     Route: 048
  3. Atorvastatine and ezetimibe [Concomitant]
     Indication: Dyslipidaemia
     Dosage: UNK
     Route: 048

REACTIONS (2)
  - Bladder dilatation [Recovered/Resolved]
  - Rash [Recovered/Resolved]

NARRATIVE: CASE EVENT DATE: 20220301
